FAERS Safety Report 12172314 (Version 2)
Quarter: 2016Q2

REPORT INFORMATION
  Report Type: Spontaneous
  Country: US (occurrence: US)
  Receive Date: 20160311
  Receipt Date: 20160413
  Transmission Date: 20160815
  Serious: No
  Sender: FDA-Public Use
  Company Number: US-BAYER-2016-048377

PATIENT
  Age: 57 Year
  Sex: Female

DRUGS (1)
  1. CLIMARA [Suspect]
     Active Substance: ESTRADIOL
     Indication: MENOPAUSAL SYMPTOMS
     Dosage: 0.1 UNK, UNK
     Route: 062
     Dates: start: 20160308, end: 201603

REACTIONS (4)
  - Metrorrhagia [None]
  - Hypersensitivity [None]
  - Application site rash [None]
  - Pyrexia [None]

NARRATIVE: CASE EVENT DATE: 20160309
